FAERS Safety Report 22018458 (Version 1)
Quarter: 2023Q1

REPORT INFORMATION
  Report Type: Spontaneous
  Country: DE (occurrence: DE)
  Receive Date: 20230221
  Receipt Date: 20230221
  Transmission Date: 20230418
  Serious: Yes (Other)
  Sender: FDA-Public Use
  Company Number: DE-ABBVIE-4314728

PATIENT
  Sex: Female

DRUGS (1)
  1. RINVOQ [Suspect]
     Active Substance: UPADACITINIB
     Indication: Colitis ulcerative
     Dosage: DRUG START DATE: JAN 2023
     Route: 048

REACTIONS (2)
  - Ileostomy [Unknown]
  - Product residue present [Unknown]

NARRATIVE: CASE EVENT DATE: 20230101
